FAERS Safety Report 11589281 (Version 1)
Quarter: 2015Q4

REPORT INFORMATION
  Report Type: Report from Study
  Country: US (occurrence: US)
  Receive Date: 20151002
  Receipt Date: 20151002
  Transmission Date: 20160304
  Serious: Yes (Hospitalization, Other)
  Sender: FDA-Public Use
  Company Number: US-BAXTER-2015BAX052587

PATIENT
  Age: 14 Year
  Sex: Female
  Weight: 53 kg

DRUGS (19)
  1. CYCLOPHOSPHAMIDE FOR INJECTION, USP [Suspect]
     Active Substance: CYCLOPHOSPHAMIDE
     Indication: ANAPLASTIC LARGE CELL LYMPHOMA T- AND NULL-CELL TYPES
     Dosage: OVER 15-30 MINUTES ON DAYS 1 AND 2, PROPHASE CYCLE = 5 DAYS
     Route: 042
  2. CRIZOTINIB [Suspect]
     Active Substance: CRIZOTINIB
     Dosage: DAYS 1-21, CYCLE=21 DAYS, COURSE B:CYCLES 2, 4 AND 6
     Route: 048
     Dates: end: 20150211
  3. CYCLOPHOSPHAMIDE FOR INJECTION, USP [Suspect]
     Active Substance: CYCLOPHOSPHAMIDE
     Dosage: OVER 15-30 MINUTES ON DAYS 1-5, COURSE B: CYCLES 2, 4 AND 6, REGIMEN# 2
     Route: 042
     Dates: end: 20150201
  4. METHOTREXATE [Suspect]
     Active Substance: METHOTREXATE
     Dosage: OVER 3 HOURS ON DAY 1, COURSE B: CYCLES 2, 4 AND 6
     Route: 042
     Dates: end: 20150128
  5. HYDROCORTISONE. [Suspect]
     Active Substance: HYDROCORTISONE
     Indication: ANAPLASTIC LARGE CELL LYMPHOMA T- AND NULL-CELL TYPES
     Dosage: 7.5-12MG ON DAY 1 (AGE BASED DOSING), PROPHASE CYCLE = 5 DAYS
     Route: 037
  6. IFOSFAMIDE FOR INJECTION [Suspect]
     Active Substance: IFOSFAMIDE
     Indication: ANAPLASTIC LARGE CELL LYMPHOMA T- AND NULL-CELL TYPES
     Dosage: OVER 60 MIN ON DAYS 1-5, COURSE A:CYCLES 1, 3 AND 5
     Route: 042
     Dates: start: 20141007, end: 20150111
  7. DOXORUBICIN HCL [Suspect]
     Active Substance: DOXORUBICIN HYDROCHLORIDE
     Indication: ANAPLASTIC LARGE CELL LYMPHOMA T- AND NULL-CELL TYPES
     Dosage: OVER 1-15 MIN ON DAYS 4 AND 5, COURSE B: CYCLES 2, 4 AND 6
     Route: 042
     Dates: end: 20150201
  8. DEXAMETHASONE. [Suspect]
     Active Substance: DEXAMETHASONE
     Indication: ANAPLASTIC LARGE CELL LYMPHOMA T- AND NULL-CELL TYPES
     Dosage: ON DAYS 1 -2, PROPHASE CYCLE = 5 DAYS
     Route: 048
  9. VP-16 [Suspect]
     Active Substance: ETOPOSIDE
     Indication: ANAPLASTIC LARGE CELL LYMPHOMA T- AND NULL-CELL TYPES
     Dosage: OVER 2 HOURS, ON DAYS 4 AND 5, COURSE A: CYCLES 1, 3, AND 5
     Route: 042
     Dates: start: 20141007, end: 20150112
  10. METHOTREXATE [Suspect]
     Active Substance: METHOTREXATE
     Indication: ANAPLASTIC LARGE CELL LYMPHOMA T- AND NULL-CELL TYPES
     Dosage: 7.5-12 MG ON DAY 1 (AGE BASED DOSING), PROPHASE CYCLE = 5 DAYS
     Route: 037
  11. METHOTREXATE [Suspect]
     Active Substance: METHOTREXATE
     Dosage: OVER 3 HOURS ON DAY 1, COURSE A: CYCLES 1, 3 AND 5
     Route: 042
     Dates: start: 20141007
  12. DEXAMETHASONE. [Suspect]
     Active Substance: DEXAMETHASONE
     Dosage: CYCLE =21 DAYS, DAYS 1-5, COURSE B:CYCLES 2, 4 AND 6
     Route: 048
     Dates: end: 20150201
  13. CYTARABINE. [Suspect]
     Active Substance: CYTARABINE
     Indication: ANAPLASTIC LARGE CELL LYMPHOMA T- AND NULL-CELL TYPES
     Dosage: OVER 1-30 MINUTES, CYCLE= 21 DAYS, ON DAYS 4 AND 5 (TOTAL 4 DOSES), COURSE A: CYCLES 1, 3 AND 5
     Route: 037
  14. DEXAMETHASONE. [Suspect]
     Active Substance: DEXAMETHASONE
     Dosage: CYCLE =21 DAYS, DAYS 1-5, COURSE A:CYCLES 1, 3 AND 5
     Route: 048
     Dates: start: 20141007
  15. MEROPENEM. [Concomitant]
     Active Substance: MEROPENEM
     Indication: PRODUCT USED FOR UNKNOWN INDICATION
     Route: 065
  16. ZYVOX [Concomitant]
     Active Substance: LINEZOLID
     Indication: PRODUCT USED FOR UNKNOWN INDICATION
     Route: 065
  17. DEXAMETHASONE. [Suspect]
     Active Substance: DEXAMETHASONE
     Dosage: ON DAYS 3-5, PROPHASE CYCLE = 5 DAYS
     Route: 048
  18. CRIZOTINIB [Suspect]
     Active Substance: CRIZOTINIB
     Indication: ANAPLASTIC LARGE CELL LYMPHOMA T- AND NULL-CELL TYPES
     Dosage: ON DAYS 1-21, CYCLE=21 DAYS, COURSE A:CYCLES 1, 3 AND 5
     Route: 048
     Dates: start: 20141007
  19. CYTARABINE. [Suspect]
     Active Substance: CYTARABINE
     Dosage: OVER 1-30 MINUTES EVERY 12 HOURS ON DAYS 4 AND 5 (TOTAL 4 DOSES), COURSE A: CYCLES 1, 3 AND 5
     Route: 042
     Dates: start: 20141007, end: 20150112

REACTIONS (3)
  - Anaemia [Not Recovered/Not Resolved]
  - Hypokalaemia [Not Recovered/Not Resolved]
  - White blood cell count decreased [Recovered/Resolved]

NARRATIVE: CASE EVENT DATE: 20150211
